FAERS Safety Report 4332779-1 (Version None)
Quarter: 2004Q1

REPORT INFORMATION
  Report Type: 
  Country: None (occurrence: None)
  Receive Date: 20040330
  Receipt Date: 20040318
  Transmission Date: 20041129
  Serious: Yes (Life-Threatening, Hospitalization)
  Sender: FDA-Public Use
  Company Number: GB-JNJFOC-20040304445

PATIENT
  Age: 72 Year

DRUGS (6)
  1. RISPERDAL [Suspect]
     Indication: SCHIZOPHRENIA
     Dosage: 8 MG, ORAL
     Route: 048
     Dates: start: 20031111, end: 20040115
  2. CLOPIXOL (ZUCLOPENTHIXOL DECANOATE) [Concomitant]
  3. PROCYCLIDINE [Concomitant]
  4. PENICILLIN V [Concomitant]
  5. HALOPERIDOL [Concomitant]
  6. OMEPRAZOLE [Concomitant]

REACTIONS (3)
  - BALANCE DISORDER [None]
  - CONFUSIONAL STATE [None]
  - RENAL FAILURE ACUTE [None]
